FAERS Safety Report 14827714 (Version 1)
Quarter: 2018Q2

REPORT INFORMATION
  Report Type: Report from Study
  Country: IT (occurrence: IT)
  Receive Date: 20180430
  Receipt Date: 20180430
  Transmission Date: 20180711
  Serious: Yes (Other)
  Sender: FDA-Public Use
  Company Number: IT-BAXTER-2018BAX012275

PATIENT
  Age: 19 Year
  Sex: Female

DRUGS (27)
  1. FOLINIC ACID [Suspect]
     Active Substance: LEUCOVORIN
     Indication: ACUTE LYMPHOCYTIC LEUKAEMIA
     Dosage: FORM: UNKNOWN
     Route: 065
  2. VINCRISTINE SULFATE. [Suspect]
     Active Substance: VINCRISTINE SULFATE
     Indication: ACUTE LYMPHOCYTIC LEUKAEMIA
     Dosage: DOSE: 1 (UNITS NOT REPORTED) (2 MG MAX), INFUSION TIME: PUSH
     Route: 042
  3. CYTARABINE. [Suspect]
     Active Substance: CYTARABINE
     Indication: ACUTE LYMPHOCYTIC LEUKAEMIA
     Dosage: DOSE:75 MILLIGRAM/SQ. METER, QD, CYCLIC (CYCLE 2);DAY 2-5, 9-12,
     Route: 058
  4. CYTARABINE. [Suspect]
     Active Substance: CYTARABINE
     Dosage: DOSE:75 MILLIGRAM/SQ. METER, QD, CYCLIC (CYCLE 2);
     Route: 042
  5. CYTARABINE. [Suspect]
     Active Substance: CYTARABINE
     Dosage: DOSE:2000 MILLIGRAM/SQ. METER, CYCLIC, CYCLE 7
     Route: 042
  6. FLUDARABINE [Suspect]
     Active Substance: FLUDARABINE PHOSPHATE
     Indication: ACUTE LYMPHOCYTIC LEUKAEMIA
     Dosage: FORM: UNKNOWN; FREQUENCY: DAY 3-4-5 ; CYCLICAL
     Route: 065
  7. PREDNISONE. [Suspect]
     Active Substance: PREDNISONE
     Indication: ACUTE LYMPHOCYTIC LEUKAEMIA
     Dosage: DOSE:20 MILLIGRAM/SQ. METER; FREQUENCY: BID CYCLIC
     Route: 048
  8. MERCAPTOPURINE. [Suspect]
     Active Substance: MERCAPTOPURINE
     Indication: ACUTE LYMPHOCYTIC LEUKAEMIA
     Dosage: FORM: UNKNOWN; DOSE:60 MILLIGRAM/SQ. METER, QD; FREQUENCY: CYCLIC, DAY 1-14 ; CYCLICAL, QD
     Route: 048
  9. LENOGRASTIM [Suspect]
     Active Substance: LENOGRASTIM
     Dosage: DOSE: 5 MICROGRAM/KILOGRAM, 5 TO ANC GREATER THAN 1.0;
     Route: 058
  10. FILGRASTIM [Suspect]
     Active Substance: FILGRASTIM
     Dosage: FORM: UNKNOWN; DOSE: 5 MICROGRAM/KILOGRAM; FREQUENCY :QD CYCLIC, ANC LESS THAN 0.5 TO GREATER THAN 1
     Route: 058
  11. LENOGRASTIM [Suspect]
     Active Substance: LENOGRASTIM
     Dosage: DOSE: 5 MICROGRAM/KILOGRAM, CYCLIC, ANC LESS THAN 0.5 TO GREATER THAN1.0; FREQUENCY: CYCLIC C7
     Route: 058
  12. FILGRASTIM [Suspect]
     Active Substance: FILGRASTIM
     Dosage: (CYCLE 7), 8 TO HARVEST/ANC GREATER THAN  UNKNOWN 1.0;
     Route: 065
  13. FILGRASTIM [Suspect]
     Active Substance: FILGRASTIM
     Dosage: DOSE: 5 MICROGRAM/KILOGRAM; FREQUENCY :QD CYCLIC, 5 TO ANC GREATER THAN 1.0
     Route: 058
  14. THIOTEPA. [Suspect]
     Active Substance: THIOTEPA
     Indication: ACUTE LYMPHOCYTIC LEUKAEMIA
     Dosage: DOSE: 1 (UNITS NOT REPORTED), FREQUENCY:DAY1-2 ; CYCLICAL
     Route: 065
  15. DEXAMETHASONE. [Suspect]
     Active Substance: DEXAMETHASONE
     Indication: ACUTE LYMPHOCYTIC LEUKAEMIA
     Dosage: FORM: UNKNOWN; DOSE:5 MILLIGRAM/SQ. METER; FREQUENCY: CYCLIC; DAY 1-5 (CYCLE 2);
     Route: 042
  16. DEXAMETHASONE. [Suspect]
     Active Substance: DEXAMETHASONE
     Dosage: FORM: UNKNOWN; DOSE:5 MILLIGRAM/SQ. METER; FREQUENCY: CYCLIC; DAY 1-5 (CYCLE 2);BID
     Route: 048
  17. INOTUZUMAB OZOGAMICIN [Concomitant]
     Active Substance: INOTUZUMAB OZOGAMICIN
     Indication: PRODUCT USED FOR UNKNOWN INDICATION
     Route: 065
  18. ENDOXAN BAXTER [Suspect]
     Active Substance: CYCLOPHOSPHAMIDE
     Indication: ACUTE LYMPHOCYTIC LEUKAEMIA
     Dosage: FORM: UNKNOWN; DOSE: 1000 MILLIGRAM/SQ. METER, CYCLIC CYCLE 2
     Route: 042
  19. ENDOXAN BAXTER [Suspect]
     Active Substance: CYCLOPHOSPHAMIDE
     Dosage: DOSE: 300 MILLIGRAM/SQ. METER, QD, CYCLIC, DAY -3 TO-1?CYCLE 2
     Route: 042
  20. BLINATUMOMAB [Suspect]
     Active Substance: BLINATUMOMAB
     Indication: ACUTE LYMPHOCYTIC LEUKAEMIA
     Dosage: FORM: UNKNOWN
     Route: 065
  21. LENOGRASTIM [Suspect]
     Active Substance: LENOGRASTIM
     Indication: ACUTE LYMPHOCYTIC LEUKAEMIA
     Dosage: DOSE: 5 MICROGRAM/KILOGRAM; FREQUENCY: CYCLICAL C3 QD
     Route: 058
  22. FILGRASTIM [Suspect]
     Active Substance: FILGRASTIM
     Indication: PRODUCT USED FOR UNKNOWN INDICATION
     Dosage: FORM: UNKNOWN; DOSE: 5 MICROGRAM/KILOGRAM; FREQUENCY :QD CYCLIC CYCLE 3
     Route: 058
  23. BUSULFAN. [Suspect]
     Active Substance: BUSULFAN
     Indication: ACUTE LYMPHOCYTIC LEUKAEMIA
     Route: 042
  24. METHOTREXATE. [Suspect]
     Active Substance: METHOTREXATE
     Indication: ACUTE LYMPHOCYTIC LEUKAEMIA
     Dosage: DOSE: 5000 MILLIGRAM/SQ. METER CYCLIC
     Route: 042
  25. IDARUBICIN [Suspect]
     Active Substance: IDARUBICIN
     Indication: ACUTE LYMPHOCYTIC LEUKAEMIA
     Dosage: FREQUENCY:  CYCLIC; DAY 1,2 (CYCLE1  AND 2)
     Route: 042
  26. DEXAMETHASONE. [Suspect]
     Active Substance: DEXAMETHASONE
     Dosage: DOSE:5 MILLIGRAM/SQ. METER; FREQUENCY: BID CYCLIC; DAY 1-5, 15-19
     Route: 042
  27. LENOGRASTIM [Suspect]
     Active Substance: LENOGRASTIM
     Dosage: DOSE: 10 MICROGRAM/SQ. METER, FREQUENCY: CYCLIC C7, 8 TO  UNKNOWN HARVEST/ANC GREATER THAN 1.0;
     Route: 065

REACTIONS (3)
  - Neurotoxicity [Recovered/Resolved]
  - Neoplasm recurrence [Unknown]
  - Seizure [Recovered/Resolved]
